FAERS Safety Report 21493140 (Version 1)
Quarter: 2022Q4

REPORT INFORMATION
  Report Type: Spontaneous
  Country: CA (occurrence: None)
  Receive Date: 20221021
  Receipt Date: 20221021
  Transmission Date: 20230112
  Serious: Yes (Life-Threatening, Hospitalization)
  Sender: FDA-Public Use
  Company Number: 2022A351107

PATIENT
  Age: 66 Year
  Sex: Male

DRUGS (12)
  1. BRILINTA [Suspect]
     Active Substance: TICAGRELOR
     Indication: Stent placement
     Route: 048
  2. ASPIRIN [Suspect]
     Active Substance: ASPIRIN
     Indication: Stent placement
     Route: 048
  3. ENTACAPONE [Concomitant]
     Active Substance: ENTACAPONE
     Route: 065
  4. ESCITALOPRAM [Concomitant]
     Active Substance: ESCITALOPRAM OXALATE
     Route: 065
  5. EZETIMIBE [Concomitant]
     Active Substance: EZETIMIBE
     Route: 065
  6. FINASTERIDE [Concomitant]
     Active Substance: FINASTERIDE
     Route: 065
  7. JANUMET [Concomitant]
     Active Substance: METFORMIN HYDROCHLORIDE\SITAGLIPTIN PHOSPHATE
     Route: 065
  8. JARDIANCE [Concomitant]
     Active Substance: EMPAGLIFLOZIN
     Route: 065
  9. RAMIPRIL [Concomitant]
     Active Substance: RAMIPRIL
     Route: 065
  10. ROSUVASTATIN [Concomitant]
     Active Substance: ROSUVASTATIN
     Route: 065
  11. SINEMET [Concomitant]
     Active Substance: CARBIDOPA\LEVODOPA
     Route: 065
  12. TRAZODONE [Concomitant]
     Active Substance: TRAZODONE HYDROCHLORIDE
     Route: 065

REACTIONS (3)
  - Craniotomy [Recovering/Resolving]
  - Subdural haematoma [Recovering/Resolving]
  - Subdural haematoma evacuation [Recovering/Resolving]
